FAERS Safety Report 6236062-9 (Version None)
Quarter: 2009Q2

REPORT INFORMATION
  Report Type: 
  Country: None (occurrence: None)
  Receive Date: 20090619
  Receipt Date: 20090610
  Transmission Date: 20091009
  Serious: Yes (Hospitalization)
  Sender: FDA-Public Use
  Company Number: US-BIOGENIDEC-2009BI018069

PATIENT
  Age: 48 Year
  Sex: Female

DRUGS (2)
  1. AVONEX [Suspect]
     Indication: MULTIPLE SCLEROSIS
     Route: 030
     Dates: start: 20060501, end: 20081201
  2. AVONEX [Suspect]
     Route: 030
     Dates: start: 20090201, end: 20090501

REACTIONS (2)
  - MONOPLEGIA [None]
  - VOCAL CORD PARALYSIS [None]
